FAERS Safety Report 9549798 (Version 2)
Quarter: 2014Q1

REPORT INFORMATION
  Report Type: Spontaneous
  Country: US (occurrence: US)
  Receive Date: 20130924
  Receipt Date: 20140320
  Transmission Date: 20141002
  Serious: Yes (Hospitalization, Other)
  Sender: FDA-Public Use
  Company Number: US-B.I. PHARMACEUTICALS,INC./RIDGEFIELD-2013-BI-29212BP

PATIENT
  Sex: Male
  Weight: 83.91 kg

DRUGS (12)
  1. PRADAXA [Suspect]
     Indication: ATRIAL FIBRILLATION
     Dosage: 300 MG
     Route: 065
     Dates: start: 20110621, end: 20110917
  2. PRADAXA [Suspect]
     Indication: ANTICOAGULANT THERAPY
  3. MULTAQ [Concomitant]
     Route: 065
     Dates: start: 2010
  4. FERREX [Concomitant]
     Route: 065
     Dates: start: 2010
  5. FOLIC ACID [Concomitant]
     Route: 065
     Dates: start: 2008
  6. HYDROCHLOROTHIAZIDE [Concomitant]
     Route: 065
     Dates: start: 2008
  7. DIOVAN [Concomitant]
     Route: 065
     Dates: start: 2003
  8. SYNTHROID [Concomitant]
     Route: 065
     Dates: start: 2008
  9. MAGNESIUM OXIDE [Concomitant]
     Route: 065
     Dates: start: 2008
  10. XARELTO [Concomitant]
     Route: 065
     Dates: start: 2011
  11. VITAMIN B-12 [Concomitant]
     Route: 065
  12. VITAMIN D-3 [Concomitant]
     Route: 065

REACTIONS (4)
  - Haemorrhagic anaemia [Unknown]
  - Gastrointestinal haemorrhage [Unknown]
  - Iron deficiency anaemia [Unknown]
  - Renal failure acute [Recovered/Resolved]
